FAERS Safety Report 22927814 (Version 12)
Quarter: 2024Q2

REPORT INFORMATION
  Report Type: Report from Study
  Country: RU (occurrence: RU)
  Receive Date: 20230911
  Receipt Date: 20240419
  Transmission Date: 20240716
  Serious: Yes (Other)
  Sender: FDA-Public Use
  Company Number: RU-002147023-NVSC2023RU184678

PATIENT
  Age: 0 Year
  Sex: Male
  Weight: 8 kg

DRUGS (6)
  1. ZOLGENSMA [Suspect]
     Active Substance: ONASEMNOGENE ABEPARVOVEC-XIOI
     Indication: Spinal muscular atrophy
     Dosage: 44 ML, ONCE/SINGLE
     Route: 042
     Dates: start: 20230804, end: 20230804
  2. PREDNISOLONE [Concomitant]
     Active Substance: PREDNISOLONE
     Indication: Product used for unknown indication
     Dosage: 8.75 MG, QD (1 TIME PER DAY, IN THE MORNING AFTER A LIGHT BREAKFAST ORALLY CONTINUOUSLY, FOR 6 WEEKS
     Route: 048
  3. ESOMEPRAZOLE [Concomitant]
     Active Substance: ESOMEPRAZOLE
     Indication: Product used for unknown indication
     Dosage: 5 MG, QD (PELLETS FOR THE PREPARATION OF A SUSPENSION OF 10 MG) (ONCE PER DAY AT NIGHT, FOR THE PERI
     Route: 048
  4. CHOLECALCIFEROL [Concomitant]
     Active Substance: CHOLECALCIFEROL
     Indication: Product used for unknown indication
     Dosage: 1500 IU (IN THE MORNING CONTINUOUSLY, FOR A LONG TIME, UNDER THE CONTROL OF THE CONCENTRATION OF VIT
     Route: 048
  5. POLYETHYLENE GLYCOLS [Concomitant]
     Active Substance: POLYETHYLENE GLYCOLS
     Indication: Product used for unknown indication
     Dosage: UNK, QD (1/2 PACK) (EVERY DAY, A COURSE OF 2 MONTHS)
     Route: 048
  6. ALUMINUM PHOSPHATE [Concomitant]
     Active Substance: ALUMINUM PHOSPHATE
     Indication: Product used for unknown indication
     Dosage: UNK, TID (GEL SACHETS, 1/2 SACHET) (3 TIMES/DAY AFTER MEALS FOR THE PERIOD OF TAKING PREDNISOLONE ,
     Route: 048

REACTIONS (17)
  - Lethargy [Recovered/Resolved]
  - Blood lactate dehydrogenase increased [Not Recovered/Not Resolved]
  - Thrombin time prolonged [Not Recovered/Not Resolved]
  - Monocyte count increased [Not Recovered/Not Resolved]
  - Pyrexia [Recovered/Resolved]
  - Aspartate aminotransferase increased [Not Recovered/Not Resolved]
  - Decreased appetite [Recovered/Resolved]
  - Platelet count increased [Unknown]
  - Neutrophil count decreased [Unknown]
  - Body temperature increased [Recovered/Resolved]
  - Red blood cell count increased [Unknown]
  - Haematocrit increased [Unknown]
  - Mean cell haemoglobin decreased [Unknown]
  - Mean cell haemoglobin concentration decreased [Unknown]
  - Eosinophil percentage increased [Unknown]
  - Blood creatinine decreased [Unknown]
  - Laboratory test abnormal [Unknown]

NARRATIVE: CASE EVENT DATE: 20230808
